FAERS Safety Report 8377857-5 (Version None)
Quarter: 2012Q2

REPORT INFORMATION
  Report Type: 
  Country: None (occurrence: None)
  Receive Date: 20120521
  Receipt Date: 20120508
  Transmission Date: 20120825
  Serious: Yes (Hospitalization)
  Sender: FDA-Public Use
  Company Number: AUR-APL-2012-02158

PATIENT
  Age: 59 Year
  Sex: Female

DRUGS (3)
  1. MIRTAZAPINE [Suspect]
     Indication: SUICIDE ATTEMPT
     Dosage: (900 MG, TOTAL), ORAL
     Route: 048
     Dates: start: 20120501, end: 20120501
  2. ATENOLOL [Suspect]
     Indication: SUICIDE ATTEMPT
     Dosage: (1300 MG, TOTAL), ORAL
     Route: 048
     Dates: start: 20120501, end: 20120501
  3. FLURAZEPAM HYDROCHLORIDE [Suspect]
     Indication: SUICIDE ATTEMPT
     Dosage: (40 DOSAGE FORMS, TOTAL), ORAL
     Route: 048
     Dates: start: 20120501, end: 20120501

REACTIONS (4)
  - BRADYKINESIA [None]
  - BRADYPHRENIA [None]
  - SOPOR [None]
  - SUICIDE ATTEMPT [None]
